FAERS Safety Report 16176853 (Version 1)
Quarter: 2019Q2

REPORT INFORMATION
  Report Type: Report from Study
  Country: US (occurrence: US)
  Receive Date: 20190409
  Receipt Date: 20190409
  Transmission Date: 20190711
  Serious: Yes (Other)
  Sender: FDA-Public Use
  Company Number: US-TAKEDA-2018TUS018375

PATIENT
  Sex: Female

DRUGS (4)
  1. PONATINIB [Suspect]
     Active Substance: PONATINIB
     Dosage: 15 MILLIGRAM, QD
     Route: 048
  2. PONATINIB [Suspect]
     Active Substance: PONATINIB
     Dosage: 15 MILLIGRAM, QOD
     Route: 048
  3. PONATINIB [Suspect]
     Active Substance: PONATINIB
     Indication: CHRONIC MYELOID LEUKAEMIA
     Dosage: 30 MG, QD
     Route: 048
     Dates: start: 20180510
  4. PONATINIB [Suspect]
     Active Substance: PONATINIB
     Dosage: 45 MG, QD
     Route: 048

REACTIONS (15)
  - Bone pain [Unknown]
  - Dizziness [Unknown]
  - Sunburn [Unknown]
  - Visual impairment [Unknown]
  - Nausea [Unknown]
  - Middle insomnia [Unknown]
  - Headache [Unknown]
  - Leukaemia recurrent [Unknown]
  - Drug intolerance [Unknown]
  - Fatigue [Unknown]
  - Rash [Unknown]
  - Decreased appetite [Unknown]
  - Head discomfort [Unknown]
  - Memory impairment [Unknown]
  - Nodule [Unknown]
